FAERS Safety Report 13722118 (Version 3)
Quarter: 2017Q4

REPORT INFORMATION
  Report Type: Spontaneous
  Country: US (occurrence: US)
  Receive Date: 20170706
  Receipt Date: 20171019
  Transmission Date: 20180320
  Serious: No
  Sender: FDA-Public Use
  Company Number: US-PFIZER INC-2017285311

PATIENT
  Age: 17 Year
  Sex: Female

DRUGS (2)
  1. EUCRISA [Suspect]
     Active Substance: CRISABOROLE
     Dosage: UNK, 1X/DAY
     Route: 061
     Dates: start: 20170511, end: 20170628
  2. EUCRISA [Suspect]
     Active Substance: CRISABOROLE
     Indication: DERMATITIS ATOPIC
     Dosage: UNK, 2X/DAY
     Route: 061
     Dates: start: 20170511

REACTIONS (5)
  - Urticaria [Unknown]
  - Rash [Unknown]
  - Dermatitis allergic [Unknown]
  - Blister [Unknown]
  - Erythema [Unknown]

NARRATIVE: CASE EVENT DATE: 20170615
